FAERS Safety Report 23037439 (Version 1)
Quarter: 2023Q4

REPORT INFORMATION
  Report Type: Spontaneous
  Country: US (occurrence: None)
  Receive Date: 20231005
  Receipt Date: 20231005
  Transmission Date: 20240110
  Serious: Yes (Hospitalization)
  Sender: FDA-Public Use
  Company Number: None

PATIENT
  Age: 62 Year
  Sex: Female
  Weight: 87.9 kg

DRUGS (2)
  1. DAPTOMYCIN [Suspect]
     Active Substance: DAPTOMYCIN
     Indication: Pneumonia staphylococcal
     Dosage: FREQUENCY : DAILY;?
     Route: 040
     Dates: start: 20230919, end: 20230923
  2. DAPTOMYCIN [Suspect]
     Active Substance: DAPTOMYCIN
     Indication: Bacteraemia

REACTIONS (8)
  - Cutaneous vasculitis [None]
  - Blister [None]
  - Rash [None]
  - Pneumonia [None]
  - Hypotension [None]
  - Bacteraemia [None]
  - Heart rate decreased [None]
  - Drug hypersensitivity [None]

NARRATIVE: CASE EVENT DATE: 20230923
